FAERS Safety Report 11404768 (Version 2)
Quarter: 2016Q1

REPORT INFORMATION
  Report Type: Report from Study
  Country: US (occurrence: US)
  Receive Date: 20150821
  Receipt Date: 20160219
  Transmission Date: 20160525
  Serious: No
  Sender: FDA-Public Use
  Company Number: PHEH2015US014301

PATIENT
  Sex: Female
  Weight: 57.15 kg

DRUGS (1)
  1. GILENYA [Suspect]
     Active Substance: FINGOLIMOD HYDROCHLORIDE
     Indication: MULTIPLE SCLEROSIS
     Dosage: 0.5 MG, QD
     Route: 048
     Dates: start: 20150427, end: 20150731

REACTIONS (4)
  - Prescribed underdose [Unknown]
  - Fine motor skill dysfunction [Not Recovered/Not Resolved]
  - Dysgraphia [Not Recovered/Not Resolved]
  - T-lymphocyte count decreased [Unknown]
